FAERS Safety Report 9571499 (Version 2)
Quarter: 2013Q4

REPORT INFORMATION
  Report Type: Spontaneous
  Country: US (occurrence: US)
  Receive Date: 20131001
  Receipt Date: 20131018
  Transmission Date: 20140711
  Serious: No
  Sender: FDA-Public Use
  Company Number: US-PFIZER INC-2013280305

PATIENT
  Age: 43 Year
  Sex: Female

DRUGS (9)
  1. LYRICA [Suspect]
     Indication: FIBROMYALGIA
     Dosage: UNK
     Dates: start: 2009
  2. LYRICA [Suspect]
     Indication: SOFT TISSUE DISORDER
  3. LYRICA [Suspect]
     Indication: MUSCULOSKELETAL DISORDER
  4. LYRICA [Suspect]
     Indication: FIBROMYALGIA
  5. LYRICA [Suspect]
     Indication: INTERVERTEBRAL DISC DEGENERATION
  6. FLEXERIL [Concomitant]
  7. ZANAFLEX [Concomitant]
  8. SKELAXIN [Concomitant]
  9. KLONOPIN [Concomitant]

REACTIONS (2)
  - Pain [Unknown]
  - Insomnia [Unknown]
